FAERS Safety Report 20215735 (Version 1)
Quarter: 2021Q4

REPORT INFORMATION
  Report Type: Spontaneous
  Country: ES (occurrence: ES)
  Receive Date: 20211222
  Receipt Date: 20211222
  Transmission Date: 20220303
  Serious: Yes (Death)
  Sender: FDA-Public Use
  Company Number: None

PATIENT
  Age: 54 Year
  Sex: Male
  Weight: 73 kg

DRUGS (4)
  1. VINCRISTINE [Suspect]
     Active Substance: VINCRISTINE
     Indication: Acute lymphocytic leukaemia
     Dosage: (809A),UNIT DOSE:2MILLIGRAM
     Route: 042
     Dates: start: 20211027, end: 20211027
  2. VINCRISTINE [Suspect]
     Active Substance: VINCRISTINE
     Dosage: (809A),UNIT DOSE:2MILLIGRAM
     Route: 042
     Dates: start: 20211103, end: 20211103
  3. METHOTREXATE (METHOTREXATE SODIUM) [Suspect]
     Active Substance: METHOTREXATE SODIUM
     Indication: Acute lymphocytic leukaemia
     Dosage: (418A),UNIT DOSE:2900MILLIGRAM
     Route: 042
     Dates: start: 20211027, end: 20211027
  4. ONCASPAR [Suspect]
     Active Substance: PEGASPARGASE
     Indication: Acute lymphocytic leukaemia
     Dosage: FORM OF ADMIN:POWDER FOR SOLUTION FOR INJECTATION AND FOR INFUSION, 1 VIAL,FORM STRENGTH:750 U / ML,
     Route: 042
     Dates: start: 20211029, end: 20211029

REACTIONS (2)
  - Hypocoagulable state [Fatal]
  - Hepatitis cholestatic [Fatal]

NARRATIVE: CASE EVENT DATE: 20211104
